FAERS Safety Report 9663320 (Version 3)
Quarter: 2014Q1

REPORT INFORMATION
  Report Type: Spontaneous
  Country: AU (occurrence: AU)
  Receive Date: 20131101
  Receipt Date: 20140326
  Transmission Date: 20141002
  Serious: Yes (Other)
  Sender: FDA-Public Use
  Company Number: AU-MERCK-1310AUS014523

PATIENT
  Age: 67 Year
  Sex: Female

DRUGS (1)
  1. EZETROL [Suspect]
     Dosage: UNK
     Route: 048
     Dates: start: 2013, end: 20131015

REACTIONS (2)
  - Arthritis [Recovered/Resolved]
  - Arthralgia [Recovered/Resolved]
